FAERS Safety Report 13639427 (Version 1)
Quarter: 2017Q2

REPORT INFORMATION
  Report Type: Spontaneous
  Country: US (occurrence: US)
  Receive Date: 20170609
  Receipt Date: 20170609
  Transmission Date: 20170830
  Serious: No
  Sender: FDA-Public Use
  Company Number: US-ROCHE-759471

PATIENT

DRUGS (2)
  1. KLONOPIN [Suspect]
     Active Substance: CLONAZEPAM
     Indication: MAJOR DEPRESSION
     Route: 065
  2. IMIPRAMINE [Concomitant]
     Active Substance: IMIPRAMINE
     Indication: MAJOR DEPRESSION
     Route: 065

REACTIONS (3)
  - Therapy non-responder [Unknown]
  - Drug tolerance increased [Not Recovered/Not Resolved]
  - Sleep disorder [Not Recovered/Not Resolved]
